FAERS Safety Report 9720988 (Version 6)
Quarter: 2014Q1

REPORT INFORMATION
  Report Type: Spontaneous
  Country: GB (occurrence: GB)
  Receive Date: 20131129
  Receipt Date: 20140103
  Transmission Date: 20141002
  Serious: Yes (Hospitalization)
  Sender: FDA-Public Use
  Company Number: GB-PFIZER INC-2013339572

PATIENT
  Age: 64 Year
  Sex: Female
  Weight: 50.3 kg

DRUGS (13)
  1. CISPLATIN [Suspect]
     Indication: GASTROOESOPHAGEAL CANCER
     Dosage: 1000 MILLIGRAM(S)/SQUARE METER, TWICE A DAY
     Route: 042
     Dates: start: 20130325
  2. RAMIPRIL [Suspect]
     Indication: HYPERTENSION
     Dosage: 2.5 MG, 1X/DAY
     Route: 048
     Dates: end: 20130622
  3. CAPECITABINE [Suspect]
     Indication: GASTROOESOPHAGEAL CANCER
     Dosage: 1650 MG, TWICE A DAY
     Route: 048
     Dates: start: 20130325, end: 20130619
  4. CAPECITABINE [Suspect]
     Dosage: 1500 MG, 2X/DAY
     Route: 048
     Dates: start: 20130621
  5. PLACEBO [Suspect]
     Indication: GASTROOESOPHAGEAL CANCER
     Dosage: 1 / 3WEEKS, BID FOR21 DAYS
     Route: 048
     Dates: start: 20130325, end: 20130620
  6. PLACEBO [Suspect]
     Dosage: UNK
     Route: 048
     Dates: start: 20130624
  7. DALTEPARIN [Concomitant]
     Indication: ANTICOAGULANT THERAPY
     Dosage: 5000 UNITS
     Route: 058
     Dates: start: 20130620, end: 20130623
  8. METOCLOPRAMIDE [Concomitant]
     Indication: VOMITING
     Dosage: 10 MG, 3X/DAY
     Route: 048
     Dates: start: 20130325
  9. SIMVASTATIN [Concomitant]
     Indication: BLOOD CHOLESTEROL INCREASED
     Dosage: 40 MG, 1X/DAY
     Route: 048
     Dates: start: 20130301
  10. DEXAMETHASONE [Concomitant]
     Indication: ANTIEMETIC SUPPORTIVE CARE
     Dosage: 2 MG, 1X/DAY
     Route: 048
     Dates: start: 20130325, end: 20130622
  11. DEXAMETHASONE [Concomitant]
     Indication: PROPHYLAXIS OF NAUSEA AND VOMITING
  12. CREON [Concomitant]
     Indication: PANCREATIC INSUFFICIENCY
     Dosage: 15000 IU, UNK
     Route: 048
  13. PARACETAMOL [Concomitant]
     Indication: ANALGESIC THERAPY
     Dosage: 1 G, AS NEEDED
     Route: 048

REACTIONS (5)
  - Hypotension [Recovered/Resolved]
  - Vomiting [Recovered/Resolved]
  - Nausea [Recovered/Resolved]
  - Abdominal pain upper [Recovered/Resolved]
  - Dyspepsia [Recovered/Resolved]
